FAERS Safety Report 4483406-4 (Version None)
Quarter: 2004Q4

REPORT INFORMATION
  Report Type: 
  Country: None (occurrence: None)
  Receive Date: 20041020
  Receipt Date: 20041004
  Transmission Date: 20050328
  Serious: Yes (Life-Threatening)
  Sender: FDA-Public Use
  Company Number: EWC041040897

PATIENT
  Age: 45 Year
  Sex: Male

DRUGS (2)
  1. XIGRIS [Suspect]
     Indication: SEPSIS
     Dosage: 24 UG/KG/HR
     Dates: start: 20040929, end: 20041002
  2. XIGRIS [Suspect]

REACTIONS (1)
  - THROMBOCYTOPENIA [None]
